FAERS Safety Report 7237789-2 (Version None)
Quarter: 2011Q1

REPORT INFORMATION
  Report Type: 
  Country: None (occurrence: None)
  Receive Date: 20110121
  Receipt Date: 20110112
  Transmission Date: 20110831
  Serious: Yes (Death, Other)
  Sender: FDA-Public Use
  Company Number: CN-ROCHE-753191

PATIENT

DRUGS (2)
  1. MYCOPHENOLATE MOFETIL [Suspect]
     Indication: RENAL TRANSPLANT
     Route: 065
  2. PREDNISONE [Suspect]
     Indication: RENAL TRANSPLANT
     Route: 065

REACTIONS (2)
  - ACUTE RESPIRATORY DISTRESS SYNDROME [None]
  - LUNG INFECTION [None]
